FAERS Safety Report 5462942-8 (Version None)
Quarter: 2007Q3

REPORT INFORMATION
  Report Type: 
  Country: None (occurrence: None)
  Receive Date: 20070920
  Receipt Date: 20070919
  Transmission Date: 20080115
  Serious: Yes (Hospitalization)
  Sender: FDA-Public Use
  Company Number: GR-BRISTOL-MYERS SQUIBB COMPANY-13913462

PATIENT
  Age: 76 Year
  Sex: Female

DRUGS (4)
  1. COAPROVEL TABS 150MG/12.5MG [Suspect]
     Indication: HYPERTENSION
     Route: 048
     Dates: end: 20070701
  2. IRBESARTAN [Suspect]
     Indication: HYPERTENSION
     Dates: start: 20070912
  3. NIMESULIDE [Suspect]
  4. PREDNISOLONE [Concomitant]
     Indication: MYALGIA

REACTIONS (2)
  - NEPHRITIS INTERSTITIAL [None]
  - VIRAL INFECTION [None]
